FAERS Safety Report 25100078 (Version 1)
Quarter: 2025Q1

REPORT INFORMATION
  Report Type: Spontaneous
  Country: US (occurrence: None)
  Receive Date: 20250319
  Receipt Date: 20250319
  Transmission Date: 20250409
  Serious: Yes (Life-Threatening, Hospitalization)
  Sender: FDA-CTU
  Company Number: None

PATIENT
  Age: 13 Year
  Sex: Female
  Weight: 43.2 kg

DRUGS (3)
  1. SERTRALINE [Suspect]
     Active Substance: SERTRALINE HYDROCHLORIDE
     Indication: Anxiety
     Dates: start: 20240601, end: 20250309
  2. TYLENOL [Suspect]
     Active Substance: ACETAMINOPHEN
  3. ALEVE [Suspect]
     Active Substance: NAPROXEN SODIUM

REACTIONS (4)
  - Suicide attempt [None]
  - Suicidal ideation [None]
  - Intentional overdose [None]
  - Emotional distress [None]

NARRATIVE: CASE EVENT DATE: 20250309
